FAERS Safety Report 8476906 (Version 3)
Quarter: 2013Q3

REPORT INFORMATION
  Report Type: Report from Study
  Country: US (occurrence: US)
  Receive Date: 20120326
  Receipt Date: 20130715
  Transmission Date: 20140515
  Serious: Yes (Hospitalization)
  Sender: FDA-Public Use
  Company Number: US-BRISTOL-MYERS SQUIBB COMPANY-16447229

PATIENT
  Age: 82 Year
  Sex: Male

DRUGS (3)
  1. SAXAGLIPTIN [Suspect]
     Indication: TYPE 2 DIABETES MELLITUS
     Route: 048
     Dates: start: 20110823
  2. INSULIN [Suspect]
     Indication: TYPE 2 DIABETES MELLITUS
     Dosage: 12 IU/U
  3. GLYBURIDE [Suspect]
     Indication: TYPE 2 DIABETES MELLITUS

REACTIONS (1)
  - Chronic obstructive pulmonary disease [Recovered/Resolved]
